FAERS Safety Report 15292811 (Version 1)
Quarter: 2018Q3

REPORT INFORMATION
  Report Type: Spontaneous
  Country: US (occurrence: US)
  Receive Date: 20180806
  Receipt Date: 20180806
  Transmission Date: 20181010
  Serious: Yes (Disabling, Other)
  Sender: FDA-Public Use
  Company Number: None

PATIENT
  Age: 56 Year
  Sex: Female
  Weight: 73 kg

DRUGS (4)
  1. LEVOFLOXACIN. [Suspect]
     Active Substance: LEVOFLOXACIN
     Indication: PROPHYLACTIC CHEMOTHERAPY
     Route: 048
     Dates: start: 20150807, end: 20150910
  2. DEXMETHASONE [Concomitant]
     Active Substance: DEXAMETHASONE
     Dates: start: 20150807, end: 20151009
  3. DOCETAXEL. [Concomitant]
     Active Substance: DOCETAXEL
     Dates: start: 20150807, end: 20151009
  4. CYCLOPHOSPHAMIDE. [Concomitant]
     Active Substance: CYCLOPHOSPHAMIDE
     Dates: start: 20150807, end: 20151009

REACTIONS (7)
  - Plantar fasciitis [None]
  - Cartilage injury [None]
  - Pain in extremity [None]
  - Tenosynovitis stenosans [None]
  - Tendonitis [None]
  - Tendon injury [None]
  - Meniscus injury [None]

NARRATIVE: CASE EVENT DATE: 20150807
